FAERS Safety Report 24118831 (Version 2)
Quarter: 2024Q3

REPORT INFORMATION
  Report Type: Spontaneous
  Country: US (occurrence: US)
  Receive Date: 20240722
  Receipt Date: 20240925
  Transmission Date: 20241017
  Serious: Yes (Disabling, Other)
  Sender: CHEPLAPHARM
  Company Number: US-PFIZER INC-202400099860

PATIENT
  Sex: Male

DRUGS (2)
  1. HYDROXYUREA [Suspect]
     Active Substance: HYDROXYUREA
     Dosage: HYDROXYUREA FOR LONG TIME AND AN INFUSED MEDICATION
  2. OXBRYTA [Suspect]
     Active Substance: VOXELOTOR
     Dosage: 500 MG. TABLET, 3 TABLETS, ONCE DAILY, ORALLY.??DAILY DOSE: 3 DOSAGE FORM
     Route: 048
     Dates: start: 20210303

REACTIONS (3)
  - Osteonecrosis [Unknown]
  - Condition aggravated [Unknown]
  - Haemoglobin decreased [Unknown]
